FAERS Safety Report 7512786-8 (Version None)
Quarter: 2011Q2

REPORT INFORMATION
  Report Type: 
  Country: None (occurrence: None)
  Receive Date: 20110531
  Receipt Date: 20110520
  Transmission Date: 20111010
  Serious: Yes (Other)
  Sender: FDA-Public Use
  Company Number: B0718862A

PATIENT
  Sex: Male

DRUGS (4)
  1. MADOPAR [Concomitant]
     Indication: PARKINSON'S DISEASE
     Route: 048
  2. REQUIP [Suspect]
     Indication: PARKINSON'S DISEASE
     Route: 048
  3. COMTAN [Concomitant]
     Indication: PARKINSON'S DISEASE
     Route: 048
  4. SELEGILINE [Concomitant]
     Indication: PARKINSON'S DISEASE
     Route: 048

REACTIONS (1)
  - ILEUS [None]
